FAERS Safety Report 5016721-6 (Version None)
Quarter: 2006Q2

REPORT INFORMATION
  Report Type: 
  Country: None (occurrence: None)
  Receive Date: 20060602
  Receipt Date: 20050310
  Transmission Date: 20061013
  Serious: No
  Sender: FDA-Public Use
  Company Number: US-GLAXOSMITHKLINE-A0549233A

PATIENT
  Age: 2 Year
  Sex: Female

DRUGS (1)
  1. AUGMENTIN '125' [Suspect]
     Indication: DRUG USE FOR UNKNOWN INDICATION
     Dosage: 1.5TSP TWICE PER DAY
     Route: 048
     Dates: start: 20050301

REACTIONS (1)
  - ENZYME ABNORMALITY [None]
